FAERS Safety Report 24098092 (Version 3)
Quarter: 2024Q3

REPORT INFORMATION
  Report Type: Spontaneous
  Country: DE (occurrence: DE)
  Receive Date: 20240716
  Receipt Date: 20240807
  Transmission Date: 20241016
  Serious: Yes (Other)
  Sender: BAUSCH AND LOMB
  Company Number: DE-LEO Pharma-371903

PATIENT
  Age: 32 Year
  Sex: Male

DRUGS (1)
  1. BRODALUMAB [Suspect]
     Active Substance: BRODALUMAB
     Indication: Psoriasis
     Dosage: LOT NOT REPORTED, NO FURTHER POSOLOGY INFORMATION REPORTED, TREATMENT DISCONTINUED
     Route: 058
     Dates: start: 201807, end: 202407

REACTIONS (1)
  - Depression [Not Recovered/Not Resolved]

NARRATIVE: CASE EVENT DATE: 20240601
